FAERS Safety Report 5333472-9 (Version None)
Quarter: 2007Q3

REPORT INFORMATION
  Report Type: 
  Country: None (occurrence: None)
  Receive Date: 20070521
  Receipt Date: 20070511
  Transmission Date: 20080115
  Serious: Yes (Hospitalization)
  Sender: FDA-Public Use
  Company Number: 2007BI005957

PATIENT
  Age: 31 Year
  Sex: Female

DRUGS (4)
  1. AVONEX [Suspect]
     Indication: MULTIPLE SCLEROSIS
     Dosage: 30 UG; QM; IM
     Route: 030
     Dates: start: 20050712
  2. NEURONTIN [Concomitant]
  3. PRILOSEC [Concomitant]
  4. AMANTADINE HCL [Concomitant]

REACTIONS (2)
  - ENDOMETRIOSIS [None]
  - HAEMORRHAGIC OVARIAN CYST [None]
